FAERS Safety Report 4962369-9 (Version None)
Quarter: 2006Q1

REPORT INFORMATION
  Report Type: 
  Country: None (occurrence: None)
  Receive Date: 20060329
  Receipt Date: 20060316
  Transmission Date: 20060701
  Serious: Yes (Disabling, Other)
  Sender: FDA-Public Use
  Company Number: 2006038945

PATIENT
  Age: 39 Year
  Sex: Female

DRUGS (1)
  1. FELDENE [Suspect]
     Indication: ILL-DEFINED DISORDER

REACTIONS (1)
  - OSTEOTOMY [None]
